FAERS Safety Report 12431222 (Version 2)
Quarter: 2016Q2

REPORT INFORMATION
  Report Type: Spontaneous
  Country: DZ (occurrence: DZ)
  Receive Date: 20160603
  Receipt Date: 20160616
  Transmission Date: 20160815
  Serious: Yes (Death, Hospitalization)
  Sender: FDA-Public Use
  Company Number: DZ-ABBVIE-16K-003-1642303-00

PATIENT
  Age: 34 Year
  Sex: Male
  Weight: 60 kg

DRUGS (1)
  1. HUMIRA [Suspect]
     Active Substance: ADALIMUMAB
     Indication: AXIAL SPONDYLOARTHRITIS
     Route: 058
     Dates: start: 20150330, end: 20160320

REACTIONS (8)
  - Diarrhoea [Fatal]
  - Depression [Fatal]
  - Decreased appetite [Fatal]
  - Abnormal behaviour [Fatal]
  - Pyrexia [Fatal]
  - General physical health deterioration [Fatal]
  - Vomiting [Fatal]
  - Crohn^s disease [Unknown]

NARRATIVE: CASE EVENT DATE: 20160322
